FAERS Safety Report 21764108 (Version 1)
Quarter: 2022Q4

REPORT INFORMATION
  Report Type: Other
  Country: IT (occurrence: None)
  Receive Date: 20221222
  Receipt Date: 20221222
  Transmission Date: 20230113
  Serious: Yes (Other)
  Sender: FDA-Public Use
  Company Number: IT-ROCHE-3225548

PATIENT
  Age: 45 Year
  Sex: Female
  Weight: 65 kg

DRUGS (20)
  1. ADO-TRASTUZUMAB EMTANSINE [Suspect]
     Active Substance: ADO-TRASTUZUMAB EMTANSINE
     Indication: HER2 positive breast cancer
     Dosage: MOST RECENT DOSE ON 27/SEP/2021
     Route: 042
     Dates: start: 20200803
  2. PERTUZUMAB [Suspect]
     Active Substance: PERTUZUMAB
     Indication: HER2 positive breast cancer
     Dosage: MOST RECENT DOSE PRIOR TO THE EVENT: 09/MAY/2017
     Route: 042
     Dates: start: 20170418, end: 20170418
  3. TRASTUZUMAB [Suspect]
     Active Substance: TRASTUZUMAB
     Indication: HER2 positive breast cancer
     Dosage: MOST RECENT DOSE PRIOR TO THE EVENT: 9/MAY/2017
     Route: 042
     Dates: start: 20170418, end: 20170418
  4. DOCETAXEL [Suspect]
     Active Substance: DOCETAXEL
     Indication: HER2 positive breast cancer
     Dosage: MOST RECENT DOSE PRIOR TO THE EVENT: 09/MAY/2017
     Route: 042
     Dates: start: 20170418, end: 20170418
  5. EXEMESTANE [Suspect]
     Active Substance: EXEMESTANE
     Indication: HER2 positive breast cancer
     Dosage: MOST RECENT DOSE ON 03/AUG/2020
     Route: 048
     Dates: start: 20171019
  6. ENANTONE LP [Concomitant]
     Active Substance: LEUPROLIDE ACETATE
  7. CHLORPHENIRAMINE MALEATE [Concomitant]
     Active Substance: CHLORPHENIRAMINE MALEATE
     Dosage: ONGOING = CHECKED
     Dates: start: 20170718
  8. MOVICOL [Concomitant]
     Active Substance: POLYETHYLENE GLYCOL 3350\POTASSIUM CHLORIDE\SODIUM BICARBONATE\SODIUM CHLORIDE
     Dosage: ONGOING = CHECKED
     Dates: start: 20220413
  9. ALDACTONE [Concomitant]
     Active Substance: SPIRONOLACTONE
     Dosage: ONGOING = CHECKED
     Dates: start: 20221012
  10. FUROSEMIDE [Concomitant]
     Active Substance: FUROSEMIDE
     Dosage: ONGOING = CHECKED
     Dates: start: 20221012
  11. OXYCODONE [Concomitant]
     Active Substance: OXYCODONE
     Dosage: ONGOING = CHECKED
     Dates: start: 20221109
  12. DIETARY SUPPLEMENT\HERBALS\MILK THISTLE [Concomitant]
     Active Substance: DIETARY SUPPLEMENT\HERBALS\MILK THISTLE
     Dosage: ONGOING = NOT CHECKED
     Dates: start: 20220316, end: 20221109
  13. CYMBALTA [Concomitant]
     Active Substance: DULOXETINE HYDROCHLORIDE
     Dosage: ONGOING = NOT CHECKED
     Dates: start: 20220622, end: 20221108
  14. FOLIC ACID [Concomitant]
     Active Substance: FOLIC ACID
     Dosage: ONGOING = CHECKED
     Dates: start: 20220622
  15. TIOBEC [THIOCTIC ACID] [Concomitant]
     Dosage: ONGOING = CHECKED
     Dates: start: 20220622
  16. CYANOCOBALAMIN\PYRIDOXINE\THIAMINE [Concomitant]
     Active Substance: CYANOCOBALAMIN\PYRIDOXINE\THIAMINE
     Dosage: ONGOING = CHECKED
     Dates: start: 20220622
  17. VARCODES [Concomitant]
     Dosage: ONGOING = CHECKED
     Dates: start: 20220727
  18. VARCODES [Concomitant]
     Dosage: ONGOING = CHECKED
     Dates: start: 20220921
  19. LEVETIRACETAM [Concomitant]
     Active Substance: LEVETIRACETAM
     Dosage: ONGOING = CHECKED
     Dates: start: 20210614
  20. LANSOPRAZOLE [Concomitant]
     Active Substance: LANSOPRAZOLE
     Dosage: ONGOING = CHECKED
     Dates: start: 20201005

REACTIONS (2)
  - Deep vein thrombosis [Not Recovered/Not Resolved]
  - Ascites [Recovered/Resolved]

NARRATIVE: CASE EVENT DATE: 20220824
